FAERS Safety Report 5311492-8 (Version None)
Quarter: 2007Q2

REPORT INFORMATION
  Report Type: 
  Country: None (occurrence: None)
  Receive Date: 20070430
  Receipt Date: 20070427
  Transmission Date: 20071010
  Serious: Yes (Death, Hospitalization)
  Sender: FDA-Public Use
  Company Number: US-GLAXOSMITHKLINE-A0591323A

PATIENT
  Age: 40 Year
  Sex: Male
  Weight: 71.4 kg

DRUGS (5)
  1. WELLBUTRIN XL [Suspect]
     Indication: DEPRESSION
     Dosage: 150MG IN THE MORNING
     Route: 048
     Dates: start: 20040122
  2. PAXIL [Suspect]
     Indication: RESTLESS LEGS SYNDROME
     Route: 048
     Dates: start: 20030401, end: 20030501
  3. PROZAC [Suspect]
     Indication: DEPRESSION
     Dosage: 20MG PER DAY
     Route: 048
     Dates: start: 20031001
  4. ZYPREXA [Suspect]
     Dosage: 15MG AT NIGHT
     Route: 048
     Dates: start: 20030501
  5. AMBIEN [Concomitant]
     Indication: SLEEP DISORDER

REACTIONS (21)
  - AGITATION [None]
  - ANXIETY [None]
  - BIPOLAR I DISORDER [None]
  - COMPLETED SUICIDE [None]
  - DELUSION [None]
  - DEPRESSION [None]
  - DISABILITY [None]
  - DRUG WITHDRAWAL SYNDROME [None]
  - FLAT AFFECT [None]
  - HYPERSOMNIA [None]
  - INSOMNIA [None]
  - MANIA [None]
  - MENTAL STATUS CHANGES [None]
  - NAUSEA [None]
  - OBSESSIVE THOUGHTS [None]
  - PAIN [None]
  - PSYCHOMOTOR HYPERACTIVITY [None]
  - PSYCHOTIC DISORDER [None]
  - SOMNOLENCE [None]
  - SPEECH DISORDER [None]
  - TENSION [None]
